FAERS Safety Report 8506462-2 (Version None)
Quarter: 2012Q3

REPORT INFORMATION
  Report Type: 
  Country: None (occurrence: None)
  Receive Date: 20120712
  Receipt Date: 20120703
  Transmission Date: 20120928
  Serious: Yes (Life-Threatening)
  Sender: FDA-Public Use
  Company Number: DE-JNJFOC-20120702610

PATIENT
  Sex: Female
  Weight: 45 kg

DRUGS (1)
  1. XARELTO [Suspect]
     Indication: CEREBROVASCULAR ACCIDENT PROPHYLAXIS
     Route: 065
     Dates: start: 20120525, end: 20120526

REACTIONS (4)
  - HYPERBILIRUBINAEMIA [None]
  - GASTROINTESTINAL PAIN [None]
  - TRANSAMINASES INCREASED [None]
  - JAUNDICE [None]
